FAERS Safety Report 4413036-1 (Version None)
Quarter: 2004Q3

REPORT INFORMATION
  Report Type: 
  Country: None (occurrence: None)
  Receive Date: 20040727
  Receipt Date: 20040715
  Transmission Date: 20050211
  Serious: Yes (Hospitalization)
  Sender: FDA-Public Use
  Company Number: APP200400617

PATIENT
  Age: 46 Year
  Sex: Female

DRUGS (13)
  1. FLUOROURACIL INJ [Suspect]
     Indication: GASTRIC CANCER
     Dosage: (452 MG, MONDAY THROUGH FRIDAY), INTRAVENOUS
     Route: 042
     Dates: start: 20040601, end: 20040625
  2. FLUOROURACIL INJ [Suspect]
  3. FLUOROURACIL INJ [Suspect]
  4. FLUOROURACIL INJ [Suspect]
  5. OXALIPLATIN [Suspect]
     Indication: GASTRIC CANCER
     Dosage: (81 MG, 1 IN 7D), INTRAVENOUS
     Route: 042
     Dates: start: 20040601, end: 20040621
  6. OXALIPLATIN [Suspect]
  7. EXTRA STRENGTH TYLENOL [Concomitant]
  8. PROTONIX [Concomitant]
  9. HYDROCHLOROTHIAZIDE [Concomitant]
  10. NORVASC [Concomitant]
  11. MARINOL [Concomitant]
  12. CLONAZEPAM [Concomitant]
  13. NEURONTIN [Concomitant]

REACTIONS (1)
  - FEBRILE NEUTROPENIA [None]
